FAERS Safety Report 4320472-0 (Version None)
Quarter: 2004Q1

REPORT INFORMATION
  Report Type: 
  Country: None (occurrence: None)
  Receive Date: 20040322
  Receipt Date: 20040129
  Transmission Date: 20041129
  Serious: Yes (Disabling)
  Sender: FDA-Public Use
  Company Number: PHFR2004GB00872

PATIENT
  Age: 68 Year
  Sex: Male

DRUGS (5)
  1. VOLTAROL RETARD [Suspect]
     Indication: PLANTAR FASCIITIS
     Dosage: 100MG/DAY
     Route: 065
     Dates: start: 19930101
  2. VOLTAROL RETARD [Suspect]
     Dosage: 50MG/DAY
     Route: 065
  3. CO-PROXAMOL [Concomitant]
     Dosage: UNK, PRN
     Route: 065
  4. AMIAS [Concomitant]
     Route: 065
  5. BENDROFLUAZIDE [Concomitant]
     Route: 065

REACTIONS (2)
  - ARTHRALGIA [None]
  - FATIGUE [None]
